FAERS Safety Report 5788450-2 (Version None)
Quarter: 2008Q2

REPORT INFORMATION
  Report Type: 
  Country: None (occurrence: None)
  Receive Date: 20080623
  Receipt Date: 20080609
  Transmission Date: 20081010
  Serious: Yes (Other)
  Sender: FDA-Public Use
  Company Number: 2008SP011145

PATIENT
  Age: 20 Year
  Sex: Female
  Weight: 50.8029 kg

DRUGS (6)
  1. CELESTONE SOLUSPAN (BETAMETHASONE SODIUM PHOSPATE/ACETATE [Suspect]
     Indication: FURUNCLE
     Dates: start: 20080101
  2. CELESTONE SOLUSPAN (BETAMETHASONE SODIUM PHOSPATE/ACETATE [Suspect]
     Indication: FURUNCLE
     Dates: start: 20080401
  3. DORYX /00055701/ (CON.) [Concomitant]
  4. Z-PAK (CON.) [Concomitant]
  5. AUGMENTIN /00756801/ (CON.) [Concomitant]
  6. SULFA  /00150702/ (CON.) [Concomitant]

REACTIONS (11)
  - ARTHRALGIA [None]
  - ASTHENIA [None]
  - DEPRESSION [None]
  - EYE PAIN [None]
  - FATIGUE [None]
  - FURUNCLE [None]
  - NAUSEA [None]
  - OLIGOMENORRHOEA [None]
  - SWELLING [None]
  - VISUAL DISTURBANCE [None]
  - WEIGHT INCREASED [None]
